FAERS Safety Report 7122202-6 (Version None)
Quarter: 2010Q4

REPORT INFORMATION
  Report Type: 
  Country: None (occurrence: None)
  Receive Date: 20101124
  Receipt Date: 20101111
  Transmission Date: 20110411
  Serious: Yes (Other)
  Sender: FDA-Public Use
  Company Number: GXKR2010BR12791

PATIENT
  Age: 52 Year
  Sex: Female

DRUGS (3)
  1. CEFTAZIDIME (NGX) [Suspect]
     Indication: STREPTOCOCCAL INFECTION
     Dosage: 1 G, QD
     Route: 033
  2. TOBRAMYCIN (NGX) [Suspect]
     Indication: STREPTOCOCCAL INFECTION
     Dosage: 75 MG, QD
     Route: 033
  3. VANCOMYCIN [Suspect]
     Indication: STREPTOCOCCAL INFECTION
     Dosage: 1 G EVERY 5 DAYS
     Route: 042

REACTIONS (3)
  - ANAEMIA [None]
  - LEUKOPENIA [None]
  - PYREXIA [None]
